FAERS Safety Report 8302685-6 (Version None)
Quarter: 2012Q2

REPORT INFORMATION
  Report Type: 
  Country: None (occurrence: None)
  Receive Date: 20120420
  Receipt Date: 20120411
  Transmission Date: 20120825
  Serious: Yes (Other)
  Sender: FDA-Public Use
  Company Number: US-ASTRAZENECA-2011SE70568

PATIENT
  Age: 87 Year
  Sex: Male

DRUGS (1)
  1. SYMBICORT [Suspect]
     Route: 055

REACTIONS (4)
  - CARDIAC FAILURE [None]
  - ARTHRITIS [None]
  - ENCEPHALITIS [None]
  - DYSPNOEA [None]
